FAERS Safety Report 6470145-3 (Version None)
Quarter: 2009Q4

REPORT INFORMATION
  Report Type: 
  Country: None (occurrence: None)
  Receive Date: 20091203
  Receipt Date: 20080303
  Transmission Date: 20100525
  Serious: Yes (Hospitalization)
  Sender: FDA-Public Use
  Company Number: US-ELI_LILLY_AND_COMPANY-US200712003346

PATIENT
  Sex: Male

DRUGS (19)
  1. BYETTA [Suspect]
     Indication: TYPE 2 DIABETES MELLITUS
     Dosage: 5 UG, 2/D
     Route: 058
     Dates: start: 20050101, end: 20050101
  2. BYETTA [Suspect]
     Dosage: 10 UG, 2/D
     Route: 058
     Dates: start: 20050101, end: 20071101
  3. BYETTA [Suspect]
     Dosage: 10 UG, 2/D
     Route: 058
     Dates: start: 20071101
  4. ACTOS [Concomitant]
     Indication: DIABETES MELLITUS
     Dosage: 15 MG, DAILY (1/D)
     Route: 048
     Dates: end: 20071101
  5. ACTOS [Concomitant]
     Dosage: 15 MG, DAILY (1/D)
     Route: 048
     Dates: start: 20071101
  6. METFORMIN HCL [Concomitant]
     Indication: DIABETES MELLITUS
     Dosage: 1000 MG, 2/D
     Route: 048
  7. FOLIC ACID [Concomitant]
     Indication: RHEUMATOID ARTHRITIS
     Dosage: 1 MG, DAILY (1/D)
     Route: 048
  8. MOBIC [Concomitant]
     Indication: ARTHRITIS
     Dosage: 7.5 MG, DAILY (1/D)
     Route: 048
     Dates: end: 20071101
  9. MOBIC [Concomitant]
     Dosage: 7.5 MG, DAILY (1/D)
     Route: 048
     Dates: start: 20071101
  10. LIPITOR [Concomitant]
     Indication: LIPIDS
     Dosage: 20 MG, EACH EVENING
     Route: 048
     Dates: end: 20071101
  11. LIPITOR [Concomitant]
     Dosage: 20 MG, EACH EVENING
     Route: 048
     Dates: start: 20071101
  12. DIOVAN /SCH/ [Concomitant]
     Indication: HYPERTENSION
     Dosage: 160 MG, DAILY (1/D)
     Route: 048
  13. ENBREL [Concomitant]
     Indication: RHEUMATOID ARTHRITIS
     Dates: end: 20071101
  14. ENBREL [Concomitant]
     Dates: start: 20071101
  15. METHOTREXATE [Concomitant]
     Indication: RHEUMATOID ARTHRITIS
     Dates: end: 20071101
  16. METHOTREXATE [Concomitant]
     Dates: start: 20071101
  17. FISH OIL [Concomitant]
  18. ASPIRIN [Concomitant]
  19. MULTIVIT [Concomitant]

REACTIONS (4)
  - CHOLANGITIS [None]
  - ESCHERICHIA BACTERAEMIA [None]
  - GALLBLADDER FISTULA [None]
  - SEPSIS [None]
